FAERS Safety Report 5628449-X (Version None)
Quarter: 2008Q1

REPORT INFORMATION
  Report Type: 
  Country: None (occurrence: None)
  Receive Date: 20080215
  Receipt Date: 20080211
  Transmission Date: 20080703
  Serious: Yes (Disabling, Other)
  Sender: FDA-Public Use
  Company Number: US-PFIZER INC-2008004068

PATIENT
  Sex: Female

DRUGS (4)
  1. ALPRAZOLAM [Suspect]
     Indication: PANIC ATTACK
  2. HYDROXYZINE [Suspect]
     Route: 030
     Dates: start: 20071117, end: 20071117
  3. MORPHINE [Suspect]
     Dates: start: 20071117, end: 20071117
  4. PNEUMOCOCCAL VACCINE [Suspect]

REACTIONS (10)
  - ARTHRITIS [None]
  - CONTUSION [None]
  - EYE IRRITATION [None]
  - HIP ARTHROPLASTY [None]
  - INJECTION SITE PAIN [None]
  - INJECTION SITE SWELLING [None]
  - OEDEMA PERIPHERAL [None]
  - PELVIC FRACTURE [None]
  - SUICIDAL IDEATION [None]
  - VISION BLURRED [None]
